FAERS Safety Report 18020294 (Version 1)
Quarter: 2020Q3

REPORT INFORMATION
  Report Type: Report from Study
  Country: HN (occurrence: HN)
  Receive Date: 20200714
  Receipt Date: 20200714
  Transmission Date: 20201103
  Serious: Yes (Death, Hospitalization)
  Sender: FDA-Public Use
  Company Number: HN-BAYER-2020-091203

PATIENT
  Age: 63 Year
  Sex: Male

DRUGS (3)
  1. NEXAVAR [Suspect]
     Active Substance: SORAFENIB
     Indication: HEPATOCELLULAR CARCINOMA
     Dosage: DAILY DOSE 800 MG
     Dates: start: 20200501, end: 20200514
  2. NEXAVAR [Suspect]
     Active Substance: SORAFENIB
     Indication: HEPATOCELLULAR CARCINOMA
     Dosage: 600 MG, UNK
     Dates: start: 202005, end: 20200530
  3. NEXAVAR [Suspect]
     Active Substance: SORAFENIB
     Indication: HEPATOCELLULAR CARCINOMA
     Dosage: 400 MG
     Dates: end: 20200618

REACTIONS (11)
  - Asthenia [Not Recovered/Not Resolved]
  - Fatigue [Not Recovered/Not Resolved]
  - Rectal haemorrhage [None]
  - Aphasia [Fatal]
  - Gingival bleeding [None]
  - Decreased appetite [Fatal]
  - Off label use [None]
  - Gingival bleeding [None]
  - Epistaxis [None]
  - Decreased appetite [Not Recovered/Not Resolved]
  - Gastrointestinal haemorrhage [None]

NARRATIVE: CASE EVENT DATE: 202005
